FAERS Safety Report 15807784 (Version 1)
Quarter: 2019Q1

REPORT INFORMATION
  Report Type: Spontaneous
  Country: FR (occurrence: FR)
  Receive Date: 20190110
  Receipt Date: 20190110
  Transmission Date: 20190417
  Serious: Yes (Life-Threatening)
  Sender: FDA-Public Use
  Company Number: FR-MYLANLABS-2019M1001946

PATIENT
  Age: 37 Year
  Sex: Male
  Weight: 96 kg

DRUGS (2)
  1. METHOTREXATE MYLAN [Suspect]
     Active Substance: METHOTREXATE SODIUM
     Indication: ACUTE LYMPHOCYTIC LEUKAEMIA
     Dosage: 1000 MILLIGRAM/SQ. METER, CYCLE
     Route: 041
     Dates: start: 20180504
  2. CYTARABINE SANDOZ [Concomitant]
     Active Substance: CYTARABINE
     Dosage: UNK
     Dates: start: 20180619

REACTIONS (3)
  - Drug clearance decreased [Recovered/Resolved]
  - Acute kidney injury [Recovering/Resolving]
  - Acute pulmonary oedema [Recovered/Resolved]

NARRATIVE: CASE EVENT DATE: 20180506
